FAERS Safety Report 24007611 (Version 1)
Quarter: 2024Q2

REPORT INFORMATION
  Report Type: Spontaneous
  Country: GB (occurrence: GB)
  Receive Date: 20240625
  Receipt Date: 20240625
  Transmission Date: 20240716
  Serious: Yes (Other)
  Sender: FDA-Public Use
  Company Number: None

PATIENT
  Age: 79 Year
  Sex: Female

DRUGS (6)
  1. IRBESARTAN [Suspect]
     Active Substance: IRBESARTAN
     Indication: Blood pressure management
     Dosage: UNK
  2. COMIRNATY (TOZINAMERAN) [Suspect]
     Active Substance: TOZINAMERAN
     Indication: COVID-19 immunisation
     Dosage: SINGLE
  3. LANSOPRAZOLE [Suspect]
     Active Substance: LANSOPRAZOLE
     Indication: Hiatus hernia
     Dosage: UNK
  4. PRIMIDONE [Suspect]
     Active Substance: PRIMIDONE
     Indication: Epilepsy
     Dosage: 500 MG (250 MG, 2X/DAY)
  5. BECONASE AQ [Concomitant]
     Active Substance: BECLOMETHASONE DIPROPIONATE MONOHYDRATE
     Indication: Product used for unknown indication
     Dosage: UNK
  6. HYLO TEAR [Concomitant]
     Indication: Maculopathy

REACTIONS (2)
  - Sleep apnoea syndrome [Unknown]
  - Fatigue [Unknown]
